FAERS Safety Report 7554994-6 (Version None)
Quarter: 2011Q2

REPORT INFORMATION
  Report Type: 
  Country: None (occurrence: None)
  Receive Date: 20110617
  Receipt Date: 20110613
  Transmission Date: 20111010
  Serious: Yes (Life-Threatening, Other)
  Sender: FDA-Public Use
  Company Number: US-PFIZER INC-2011110612

PATIENT
  Sex: Male

DRUGS (3)
  1. AMIODARONE HCL [Suspect]
     Dosage: UNK
     Dates: start: 19991201, end: 20010901
  2. LISINOPRIL [Concomitant]
     Dosage: UNK
  3. LASIX [Concomitant]
     Dosage: UNK

REACTIONS (5)
  - CARDIAC FAILURE [None]
  - HEPATIC FAILURE [None]
  - OEDEMA [None]
  - CARDIAC ARREST [None]
  - ASCITES [None]
